FAERS Safety Report 21652565 (Version 1)
Quarter: 2022Q4

REPORT INFORMATION
  Report Type: Spontaneous
  Country: CN (occurrence: CN)
  Receive Date: 20221128
  Receipt Date: 20221128
  Transmission Date: 20230113
  Serious: Yes (Hospitalization)
  Sender: FDA-Public Use
  Company Number: CN-PFIZER INC-PV202200110087

PATIENT
  Age: 55 Year
  Sex: Female
  Weight: 67.1 kg

DRUGS (8)
  1. EPIRUBICIN [Suspect]
     Active Substance: EPIRUBICIN
     Indication: Breast cancer
     Dosage: 120 MG (+SODIUM CHLORIDE INJECTION 250ML), 1X/DAY
     Route: 041
     Dates: start: 20221027, end: 20221027
  2. CYCLOPHOSPHAMIDE [Suspect]
     Active Substance: CYCLOPHOSPHAMIDE
     Indication: Breast cancer
     Dosage: 0.81 G (+SODIUM CHLORIDE INJECTION 500ML), 1X/DAY
     Route: 041
     Dates: start: 20221027, end: 20221027
  3. DOCETAXEL [Suspect]
     Active Substance: DOCETAXEL
     Indication: Breast cancer
     Dosage: 20 MG (+SODIUM CHLORIDE INJECTION 100ML), 1X/DAY
     Route: 041
     Dates: start: 20221028, end: 20221028
  4. DOCETAXEL [Suspect]
     Active Substance: DOCETAXEL
     Dosage: 100 MG (+SODIUM CHLORIDE INJECTION 250ML), 1X/DAY
     Route: 041
     Dates: start: 20221028, end: 20221028
  5. SODIUM CHLORIDE [Concomitant]
     Active Substance: SODIUM CHLORIDE
     Indication: Vehicle solution use
     Dosage: 250 ML, 1X/DAY (FOR EPIRUBICIN)
     Route: 041
     Dates: start: 20221027, end: 20221027
  6. SODIUM CHLORIDE [Concomitant]
     Active Substance: SODIUM CHLORIDE
     Dosage: 500 ML, 1X/DAY (FOR CYCLOPHOSPHAMIDE)
     Route: 041
     Dates: start: 20221027, end: 20221027
  7. SODIUM CHLORIDE [Concomitant]
     Active Substance: SODIUM CHLORIDE
     Dosage: 250 ML, 1X/DAY (FOR DOCETAXEL)
     Route: 041
     Dates: start: 20221028, end: 20221028
  8. SODIUM CHLORIDE [Concomitant]
     Active Substance: SODIUM CHLORIDE
     Dosage: 100 ML, 1X/DAY (FOR DOCETAXEL)
     Route: 041
     Dates: start: 20221028, end: 20221028

REACTIONS (5)
  - Myelosuppression [Recovered/Resolved]
  - Diarrhoea [Recovered/Resolved]
  - Pyrexia [Recovered/Resolved]
  - Abdominal pain [Recovered/Resolved]
  - Asthenia [Recovered/Resolved]

NARRATIVE: CASE EVENT DATE: 20221103
